FAERS Safety Report 8976258 (Version 1)
Quarter: 2012Q4

REPORT INFORMATION
  Report Type: Report from Study
  Country: CA (occurrence: CA)
  Receive Date: 20121220
  Receipt Date: 20121220
  Transmission Date: 20130627
  Serious: Yes (Other)
  Sender: FDA-Public Use
  Company Number: CA-ROCHE-1167269

PATIENT
  Sex: Male

DRUGS (4)
  1. OMALIZUMAB [Suspect]
     Indication: ASTHMA
     Route: 065
     Dates: start: 20061112
  2. VENTOLIN [Concomitant]
     Route: 065
  3. FLONASE [Concomitant]
  4. PREDNISONE [Concomitant]
     Route: 065
     Dates: start: 20071223

REACTIONS (8)
  - Blood pressure increased [Unknown]
  - Back pain [Unknown]
  - Nasopharyngitis [Unknown]
  - Painful respiration [Unknown]
  - Rales [Unknown]
  - Influenza [Unknown]
  - Pneumothorax [Unknown]
  - Asthma [Unknown]
